FAERS Safety Report 15625079 (Version 1)
Quarter: 2018Q4

REPORT INFORMATION
  Report Type: Spontaneous
  Country: SE (occurrence: SE)
  Receive Date: 20181116
  Receipt Date: 20181116
  Transmission Date: 20190205
  Serious: Yes (Other)
  Sender: FDA-Public Use
  Company Number: SE-009507513-1811SWE004051

PATIENT
  Age: 37 Year
  Sex: Male

DRUGS (2)
  1. RIBAVIRIN. [Suspect]
     Active Substance: RIBAVIRIN
     Dosage: 1200 MILLIGRAMS, QD
  2. TELAPREVIR [Suspect]
     Active Substance: TELAPREVIR

REACTIONS (2)
  - Hepatitis C [Unknown]
  - Drug resistance [Unknown]
